FAERS Safety Report 18285894 (Version 2)
Quarter: 2021Q1

REPORT INFORMATION
  Report Type: Report from Study
  Country: US (occurrence: US)
  Receive Date: 20200919
  Receipt Date: 20210216
  Transmission Date: 20210419
  Serious: Yes (Other)
  Sender: FDA-Public Use
  Company Number: NVSC2020US068443

PATIENT
  Age: 69 Year
  Sex: Female

DRUGS (1)
  1. ENTRESTO [Suspect]
     Active Substance: SACUBITRIL\VALSARTAN
     Indication: CARDIAC FAILURE
     Dosage: 1 DF, BID (24MG/26MG)
     Route: 048
     Dates: start: 202002

REACTIONS (2)
  - Ejection fraction abnormal [Unknown]
  - Wrist fracture [Unknown]

NARRATIVE: CASE EVENT DATE: 202008
